FAERS Safety Report 9264101 (Version 2)
Quarter: 2013Q4

REPORT INFORMATION
  Report Type: Report from Study
  Country: US (occurrence: US)
  Receive Date: 20130430
  Receipt Date: 20131008
  Transmission Date: 20140711
  Serious: Yes (Hospitalization)
  Sender: FDA-Public Use
  Company Number: US-BRISTOL-MYERS SQUIBB COMPANY-18821777

PATIENT
  Age: 29 Year
  Sex: Female

DRUGS (4)
  1. DASATINIB [Suspect]
     Indication: CHRONIC MYELOID LEUKAEMIA
     Dosage: INTER ON:21MAR13.
     Route: 048
     Dates: start: 20120201
  2. ALBUTEROL [Concomitant]
     Dates: start: 2008
  3. AMITRIPTYLINE HCL [Concomitant]
     Dates: start: 20120125
  4. LEVOTHYROXINE SODIUM [Concomitant]
     Dates: start: 201111

REACTIONS (1)
  - Cardiac tamponade [Recovered/Resolved]
